FAERS Safety Report 5451172-1 (Version None)
Quarter: 2007Q3

REPORT INFORMATION
  Report Type: 
  Country: None (occurrence: None)
  Receive Date: 20070913
  Receipt Date: 20070906
  Transmission Date: 20080115
  Serious: Yes (Other)
  Sender: FDA-Public Use
  Company Number: US-JNJFOC-20070901081

PATIENT
  Sex: Male
  Weight: 86.18 kg

DRUGS (12)
  1. DURAGESIC-100 [Suspect]
     Indication: PAIN
     Route: 062
  2. TRAZODONE HCL [Concomitant]
     Dosage: 1 AT NIGHT
     Route: 048
  3. WELLBUTRIN [Concomitant]
     Indication: DEPRESSION
     Route: 048
  4. LEXAPRO [Concomitant]
     Indication: DEPRESSION
     Route: 048
  5. LIDODERM [Concomitant]
     Indication: PAIN
     Route: 062
  6. PLAVIX [Concomitant]
     Route: 048
  7. ZOCOR [Concomitant]
     Route: 048
  8. IMDUR [Concomitant]
     Route: 048
  9. ASPIRIN [Concomitant]
     Route: 048
  10. KLONOPIN [Concomitant]
     Dosage: IN THE EVENING
     Route: 048
  11. KLONOPIN [Concomitant]
     Indication: ANXIETY
     Dosage: IN THE MORNING
     Route: 048
  12. NEURONTIN [Concomitant]
     Indication: PAIN
     Route: 048

REACTIONS (4)
  - FEELING ABNORMAL [None]
  - INAPPROPRIATE SCHEDULE OF DRUG ADMINISTRATION [None]
  - OVERDOSE [None]
  - VISUAL DISTURBANCE [None]
